FAERS Safety Report 9887513 (Version 4)
Quarter: 2014Q4

REPORT INFORMATION
  Report Type: Report from Study
  Country: MX (occurrence: MX)
  Receive Date: 20140211
  Receipt Date: 20141028
  Transmission Date: 20150529
  Serious: Yes (Hospitalization)
  Sender: FDA-Public Use
  Company Number: MX-ROCHE-1312440

PATIENT
  Age: 49 Year
  Sex: Female
  Weight: 65.5 kg

DRUGS (4)
  1. RITUXIMAB [Suspect]
     Active Substance: RITUXIMAB
     Indication: B-CELL LYMPHOMA
     Route: 042
  2. ONDANSETRON [Concomitant]
     Active Substance: ONDANSETRON
     Route: 065
     Dates: start: 20130904, end: 20130904
  3. ITRACONAZOL [Concomitant]
     Active Substance: ITRACONAZOLE
     Route: 065
     Dates: start: 20130904, end: 20130918
  4. RITUXIMAB [Suspect]
     Active Substance: RITUXIMAB
     Indication: B-CELL LYMPHOMA
     Dosage: DATE OF LAST DOSE OF RITUXIMAB PRIOR TO MENINGITIS: 30/OCT/2013, LAST DOSE PRIOR TO HYDROCEPHALUS :
     Route: 058
     Dates: start: 20130410

REACTIONS (2)
  - Hydrocephalus [Not Recovered/Not Resolved]
  - Meningitis [Recovered/Resolved]

NARRATIVE: CASE EVENT DATE: 20131128
